FAERS Safety Report 15694165 (Version 3)
Quarter: 2019Q2

REPORT INFORMATION
  Report Type: Report from Study
  Country: US (occurrence: US)
  Receive Date: 20181206
  Receipt Date: 20190425
  Transmission Date: 20190711
  Serious: Yes (Other)
  Sender: FDA-Public Use
  Company Number: PHEH2018US050679

PATIENT
  Sex: Female

DRUGS (1)
  1. COSENTYX [Suspect]
     Active Substance: SECUKINUMAB
     Indication: PSORIASIS
     Dosage: 300 MG, QW
     Route: 058

REACTIONS (5)
  - Abdominal discomfort [Recovered/Resolved]
  - Therapeutic response unexpected [Unknown]
  - Headache [Unknown]
  - Injection site pain [Unknown]
  - Gastric ulcer [Not Recovered/Not Resolved]
